FAERS Safety Report 8836659 (Version 1)
Quarter: 2012Q4

REPORT INFORMATION
  Report Type: Spontaneous
  Country: GB (occurrence: None)
  Receive Date: 20121010
  Receipt Date: 20121010
  Transmission Date: 20130627
  Serious: Yes (Other)
  Sender: FDA-Public Use
  Company Number: 2012P1041330

PATIENT
  Age: 74 Year
  Sex: Male

DRUGS (7)
  1. FENTANYL [Suspect]
     Indication: PAIN
     Dates: start: 2009
  2. FENTANYL [Suspect]
     Indication: PAIN
  3. OXYCONTIN [Suspect]
     Indication: PAIN
     Route: 048
     Dates: start: 2009, end: 20110406
  4. OXYCONTIN [Suspect]
     Indication: PAIN
     Route: 048
     Dates: start: 20110406, end: 20110919
  5. OXYCONTIN [Suspect]
     Indication: PAIN
     Dosage: 4 tablets;; po
     Route: 048
     Dates: start: 20110929, end: 20120522
  6. OXYNORM [Suspect]
     Indication: PAIN
  7. GABAPENTIN [Concomitant]

REACTIONS (10)
  - Drug tolerance [None]
  - Drug withdrawal syndrome [None]
  - Pruritus [None]
  - Influenza like illness [None]
  - Lacrimation increased [None]
  - Rhinorrhoea [None]
  - Drug effect decreased [None]
  - Drug dose omission [None]
  - Drug ineffective [None]
  - Product quality issue [None]
